FAERS Safety Report 14929064 (Version 1)
Quarter: 2018Q2

REPORT INFORMATION
  Report Type: Spontaneous
  Country: GB (occurrence: GB)
  Receive Date: 20180523
  Receipt Date: 20180523
  Transmission Date: 20180711
  Serious: Yes (Other)
  Sender: FDA-Public Use
  Company Number: GB-TEVA-2018-GB-896105

PATIENT
  Age: 1 Week
  Sex: Female
  Weight: 3.17 kg

DRUGS (2)
  1. CEFALEXIN [Suspect]
     Active Substance: CEPHALEXIN
     Indication: INFECTION PROPHYLAXIS
     Dosage: 1500 MILLIGRAM DAILY; INTRAVENOUSLY FOR 2 DAYS AND THEN ORALLY FOR 7
     Route: 063
     Dates: start: 20170820, end: 20170829
  2. METRONIDAZOLE. [Suspect]
     Active Substance: METRONIDAZOLE
     Indication: INFECTION PROPHYLAXIS
     Dosage: 600 MILLIGRAM DAILY; INTRAVENOUSLY FOR 2 DAYS AND THEN ORALLY FOR 7
     Route: 063
     Dates: start: 20170820, end: 20170829

REACTIONS (4)
  - Oral candidiasis [Unknown]
  - Lactose intolerance [Unknown]
  - Abdominal pain [Unknown]
  - Haematochezia [Unknown]
